FAERS Safety Report 19208113 (Version 3)
Quarter: 2021Q3

REPORT INFORMATION
  Report Type: Spontaneous
  Country: US (occurrence: US)
  Receive Date: 20210503
  Receipt Date: 20210826
  Transmission Date: 20211014
  Serious: No
  Sender: FDA-Public Use
  Company Number: US-BIOGEN-2021BI01006553

PATIENT
  Sex: Female

DRUGS (23)
  1. AVONEX [Suspect]
     Active Substance: INTERFERON BETA-1A
  2. COLACE [Concomitant]
     Active Substance: DOCUSATE SODIUM
     Route: 065
  3. GAS?X [Concomitant]
     Active Substance: DIMETHICONE
     Route: 065
  4. AVONEX [Suspect]
     Active Substance: INTERFERON BETA-1A
  5. AVONEX [Suspect]
     Active Substance: INTERFERON BETA-1A
  6. AVONEX PEN [Suspect]
     Active Substance: INTERFERON BETA-1A
  7. CLONAZEPAM. [Concomitant]
     Active Substance: CLONAZEPAM
     Route: 065
  8. AVONEX [Suspect]
     Active Substance: INTERFERON BETA-1A
  9. AVONEX [Suspect]
     Active Substance: INTERFERON BETA-1A
  10. AVONEX [Suspect]
     Active Substance: INTERFERON BETA-1A
  11. AVONEX PEN [Suspect]
     Active Substance: INTERFERON BETA-1A
  12. FLUTICASONE PROPIONATE. [Concomitant]
     Active Substance: FLUTICASONE PROPIONATE
     Route: 065
  13. AVONEX [Suspect]
     Active Substance: INTERFERON BETA-1A
  14. AVONEX [Suspect]
     Active Substance: INTERFERON BETA-1A
  15. AVONEX [Suspect]
     Active Substance: INTERFERON BETA-1A
  16. AVONEX PEN [Suspect]
     Active Substance: INTERFERON BETA-1A
  17. PAXIL [Concomitant]
     Active Substance: PAROXETINE HYDROCHLORIDE
     Route: 065
  18. AVONEX [Suspect]
     Active Substance: INTERFERON BETA-1A
  19. AVONEX [Suspect]
     Active Substance: INTERFERON BETA-1A
     Indication: MULTIPLE SCLEROSIS
     Route: 065
     Dates: start: 19971201
  20. AVONEX [Suspect]
     Active Substance: INTERFERON BETA-1A
  21. AVONEX [Suspect]
     Active Substance: INTERFERON BETA-1A
  22. AVONEX PEN [Suspect]
     Active Substance: INTERFERON BETA-1A
     Indication: MULTIPLE SCLEROSIS
     Dosage: INJECT 30 MCG INTRAMUSCULARLY ONCE WEEKLY
     Route: 065
  23. METHYLPHENIDATE HYDROCHLORIDE. [Concomitant]
     Active Substance: METHYLPHENIDATE HYDROCHLORIDE
     Route: 065

REACTIONS (10)
  - Dry mouth [Not Recovered/Not Resolved]
  - Dry eye [Not Recovered/Not Resolved]
  - Dry skin [Not Recovered/Not Resolved]
  - Gingival recession [Unknown]
  - Dizziness [Unknown]
  - Drug delivery system malfunction [Unknown]
  - Night sweats [Unknown]
  - Vulvovaginal burning sensation [Unknown]
  - Lethargy [Unknown]
  - Decreased interest [Unknown]
